FAERS Safety Report 5316510-9 (Version None)
Quarter: 2007Q2

REPORT INFORMATION
  Report Type: 
  Country: None (occurrence: None)
  Receive Date: 20070504
  Receipt Date: 20070501
  Transmission Date: 20071010
  Serious: Yes (Life-Threatening, Hospitalization)
  Sender: FDA-Public Use
  Company Number: 2007UW06785

PATIENT
  Age: 66 Year
  Sex: Female

DRUGS (6)
  1. NOLVADEX [Suspect]
     Indication: BREAST CANCER
     Route: 048
     Dates: start: 20070215, end: 20070218
  2. DIOVAN PLUS [Concomitant]
     Dosage: 80/12.5
     Route: 048
  3. METFORMIN HCL [Concomitant]
     Route: 048
  4. ASPIRIN [Concomitant]
     Route: 048
  5. CALCIUM + VIT D [Concomitant]
     Route: 048
  6. VITAMIN B-12 [Concomitant]
     Route: 048

REACTIONS (1)
  - ACUTE RESPIRATORY DISTRESS SYNDROME [None]
